FAERS Safety Report 8763955 (Version 2)
Quarter: 2012Q4

REPORT INFORMATION
  Report Type: 
  Country: US (occurrence: US)
  Receive Date: 20120831
  Receipt Date: 20120831
  Transmission Date: 20130627
  Serious: Yes (Hospitalization, Disabling, Other)
  Sender: FDA-Public Use
  Company Number: US-009507513-0910USA03486

PATIENT

DRUGS (8)
  1. FOSAMAX [Suspect]
     Indication: OSTEOPOROSIS
     Dosage: 5 mg, qd
     Route: 048
     Dates: start: 19970801, end: 2000
  2. FOSAMAX [Suspect]
     Indication: OSTEOPENIA
     Dosage: 10 mg, qd
     Route: 048
     Dates: start: 1998, end: 20010109
  3. FOSAMAX [Suspect]
     Dosage: 70 mg, QW
     Route: 048
     Dates: start: 20010810, end: 20071220
  4. FOSAMAX [Suspect]
     Dosage: UNK
     Route: 048
     Dates: end: 20070607
  5. AMBIEN [Concomitant]
     Indication: SLEEP DISORDER THERAPY
     Dates: start: 1993
  6. SYNTHROID [Concomitant]
     Indication: THYROIDECTOMY
     Dates: start: 1976
  7. FOSAMAX PLUS D [Suspect]
     Indication: OSTEOPOROSIS
     Dosage: 70/2800
     Route: 048
     Dates: start: 20060308, end: 20071029
  8. FOSAMAX PLUS D [Suspect]
     Indication: OSTEOPENIA

REACTIONS (44)
  - Femur fracture [Unknown]
  - Femur fracture [Not Recovered/Not Resolved]
  - Bone disorder [Unknown]
  - Stress fracture [Unknown]
  - Low turnover osteopathy [Unknown]
  - Osteoma [Unknown]
  - Concussion [Unknown]
  - Depression [Unknown]
  - Pyrexia [Recovering/Resolving]
  - Libido decreased [Unknown]
  - Female orgasmic disorder [Unknown]
  - Tibia fracture [Unknown]
  - Fibula fracture [Unknown]
  - Insomnia [Unknown]
  - Mitral valve prolapse [Unknown]
  - Metastases to bone [Unknown]
  - Plantar fasciitis [Unknown]
  - Gait disturbance [Unknown]
  - Bone lesion [Unknown]
  - Palpitations [Unknown]
  - Back pain [Unknown]
  - Musculoskeletal chest pain [Unknown]
  - Musculoskeletal chest pain [Unknown]
  - Rib fracture [Unknown]
  - Intervertebral disc degeneration [Not Recovered/Not Resolved]
  - Gastrooesophageal reflux disease [Unknown]
  - Gastrointestinal disorder [Unknown]
  - Musculoskeletal disorder [Unknown]
  - Adverse event [Unknown]
  - Skin cancer [Unknown]
  - Skin cancer [Unknown]
  - Nasal disorder [Unknown]
  - Synovial cyst [Unknown]
  - Arthralgia [Unknown]
  - Bursitis [Unknown]
  - Impaired healing [Unknown]
  - Internal fixation of fracture [Unknown]
  - Muscle strain [Unknown]
  - Haematoma [Unknown]
  - Laceration [Unknown]
  - Fall [Unknown]
  - Diverticulum [Unknown]
  - Hepatic cyst [Unknown]
  - Uterine leiomyoma [Unknown]
